FAERS Safety Report 11784546 (Version 3)
Quarter: 2017Q3

REPORT INFORMATION
  Report Type: Spontaneous
  Country: FR (occurrence: FR)
  Receive Date: 20151130
  Receipt Date: 20170802
  Transmission Date: 20171127
  Serious: Yes (Hospitalization, Other)
  Sender: FDA-Public Use
  Company Number: FR-ZYDUS-009610

PATIENT
  Age: 80 Year
  Sex: Male

DRUGS (5)
  1. OMEPRAZOLE. [Suspect]
     Active Substance: OMEPRAZOLE
     Indication: PRODUCT USED FOR UNKNOWN INDICATION
  2. BISOPROLOL/BISOPROLOL FUMARATE/BISOPROLOL HEMIFUMARATE [Concomitant]
     Indication: PRODUCT USED FOR UNKNOWN INDICATION
     Dosage: 2.5 MG3
  3. CANDESARTAN/CANDESARTAN CILEXETIL [Concomitant]
     Indication: PRODUCT USED FOR UNKNOWN INDICATION
  4. SIMVASTATIN. [Concomitant]
     Active Substance: SIMVASTATIN
     Indication: PRODUCT USED FOR UNKNOWN INDICATION
  5. METHOTREXATE. [Interacting]
     Active Substance: METHOTREXATE
     Indication: SQUAMOUS CELL CARCINOMA
     Dosage: 2 CYCLICAL
     Dates: start: 2013

REACTIONS (5)
  - Drug interaction [Recovered/Resolved]
  - Blood creatinine increased [Recovered/Resolved]
  - Mucosal inflammation [Recovered/Resolved]
  - Pancytopenia [Recovered/Resolved]
  - Skin lesion [Recovered/Resolved]
